FAERS Safety Report 8828721 (Version 1)
Quarter: 2012Q4

REPORT INFORMATION
  Report Type: 
  Country: DE (occurrence: DE)
  Receive Date: 20121008
  Receipt Date: 20121008
  Transmission Date: 20130627
  Serious: Yes (Hospitalization, Congenital Anomaly)
  Sender: FDA-Public Use
  Company Number: DE-TEVA-360921GER

PATIENT
  Age: 0 Year
  Sex: Male

DRUGS (4)
  1. DOXEPIN [Suspect]
     Route: 064
  2. PAROXETIN [Suspect]
     Route: 064
  3. CARBAMAZEPIN [Suspect]
     Route: 064
  4. DISTRANEURIN [Suspect]
     Route: 064

REACTIONS (4)
  - Neonatal respiratory distress syndrome [Recovered/Resolved]
  - Atrial septal defect [Unknown]
  - Ventricular septal defect [Unknown]
  - Pulmonary valve stenosis congenital [Unknown]
